FAERS Safety Report 21289833 (Version 1)
Quarter: 2022Q3

REPORT INFORMATION
  Report Type: Report from Study
  Country: US (occurrence: None)
  Receive Date: 20220902
  Receipt Date: 20220902
  Transmission Date: 20221027
  Serious: Yes (Other)
  Sender: FDA-Public Use
  Company Number: 2022A274100

PATIENT
  Sex: Female

DRUGS (8)
  1. TAGRISSO [Suspect]
     Active Substance: OSIMERTINIB
     Indication: Lung carcinoma cell type unspecified stage 0
     Route: 048
     Dates: start: 20210823, end: 20220120
  2. TAGRISSO [Suspect]
     Active Substance: OSIMERTINIB
     Indication: Lung carcinoma cell type unspecified stage 0
     Route: 048
     Dates: start: 20211129
  3. TAGRISSO [Suspect]
     Active Substance: OSIMERTINIB
     Indication: Lung carcinoma cell type unspecified stage 0
     Route: 048
     Dates: start: 202205
  4. VITAMINS [Concomitant]
     Active Substance: VITAMINS
     Route: 048
  5. ATORVASTATIN [Concomitant]
     Active Substance: ATORVASTATIN
     Route: 048
  6. AMLODIPINE [Concomitant]
     Active Substance: AMLODIPINE BESYLATE
     Route: 048
  7. METRONIDAZOLE [Concomitant]
     Active Substance: METRONIDAZOLE
     Route: 067
  8. VITAMIN B COMPLEX [Concomitant]
     Active Substance: CYANOCOBALAMIN\DEXPANTHENOL\NIACINAMIDE\PYRIDOXINE HYDROCHLORIDE\RIBOFLAVIN 5^-PHOSPHATE SODIUM\THIA
     Route: 048

REACTIONS (22)
  - Biliary dilatation [Unknown]
  - Hiatus hernia [Unknown]
  - Breast mass [Unknown]
  - Spleen disorder [Unknown]
  - Renal atrophy [Unknown]
  - Lymph node palpable [Unknown]
  - Blood creatine increased [Unknown]
  - Cataract [Unknown]
  - Lung opacity [Unknown]
  - Osteopenia [Unknown]
  - Lip swelling [Unknown]
  - Oral discomfort [Not Recovered/Not Resolved]
  - Lip blister [Not Recovered/Not Resolved]
  - Goitre [Unknown]
  - Nervousness [Unknown]
  - Decreased appetite [Unknown]
  - Depression [Unknown]
  - Cerebral small vessel ischaemic disease [Unknown]
  - Stomatitis [Recovering/Resolving]
  - Suspected COVID-19 [Unknown]
  - Fall [Unknown]
  - Inappropriate schedule of product administration [Unknown]
